FAERS Safety Report 4781630-4 (Version None)
Quarter: 2005Q3

REPORT INFORMATION
  Report Type: 
  Country: None (occurrence: None)
  Receive Date: 20050927
  Receipt Date: 20050914
  Transmission Date: 20060218
  Serious: Yes (Other)
  Sender: FDA-Public Use
  Company Number: 2005107101

PATIENT
  Age: 33 Year
  Sex: Female

DRUGS (4)
  1. TOLTERODINE TARTRATE [Suspect]
     Indication: ILL-DEFINED DISORDER
     Dosage: (4 MG), ORAL
     Route: 048
     Dates: start: 20040201, end: 20040301
  2. VENTOLIN [Concomitant]
  3. BECLOMETHASONE (BECLOMETASONE) [Concomitant]
  4. LANSOPRAZOLE [Concomitant]

REACTIONS (2)
  - DYSPHAGIA [None]
  - FACE OEDEMA [None]
